FAERS Safety Report 9028212 (Version 2)
Quarter: 2013Q1

REPORT INFORMATION
  Report Type: Report from Study
  Country: CA (occurrence: CA)
  Receive Date: 20130123
  Receipt Date: 20130305
  Transmission Date: 20140127
  Serious: Yes (Death, Hospitalization)
  Sender: FDA-Public Use
  Company Number: CA-EISAI INC-E7389-03454-SOL-CA

PATIENT
  Age: 70 Year
  Sex: Male

DRUGS (1)
  1. HALAVEN [Suspect]
     Indication: BREAST CANCER METASTATIC
     Dosage: UNKNOWN
     Route: 041
     Dates: start: 20121220, end: 20121220

REACTIONS (4)
  - Malignant neoplasm progression [Fatal]
  - Neutrophil count decreased [Unknown]
  - Toxicity to various agents [Unknown]
  - Oropharyngeal pain [Unknown]
